FAERS Safety Report 22379580 (Version 2)
Quarter: 2023Q2

REPORT INFORMATION
  Report Type: Report from Study
  Country: US (occurrence: US)
  Receive Date: 20230529
  Receipt Date: 20230612
  Transmission Date: 20230721
  Serious: Yes (Hospitalization)
  Sender: FDA-Public Use
  Company Number: US-PFIZER INC-PV202300090258

PATIENT
  Age: 71 Year
  Sex: Female
  Weight: 87 kg

DRUGS (2)
  1. TALAZOPARIB [Suspect]
     Active Substance: TALAZOPARIB
     Indication: Small cell lung cancer
     Dosage: LAST ADMINISTERED DATE: 07JUL2022
     Dates: start: 20220610, end: 20220707
  2. ATEZOLIZUMAB [Suspect]
     Active Substance: ATEZOLIZUMAB
     Indication: Small cell lung cancer
     Dosage: 1200 MG (LAST ADMINISTERED DATE: 17JUN2022)
     Dates: start: 20220617, end: 20220617

REACTIONS (2)
  - COVID-19 [Recovered/Resolved]
  - COVID-19 pneumonia [Recovered/Resolved]

NARRATIVE: CASE EVENT DATE: 20220707
